FAERS Safety Report 4998514-9 (Version None)
Quarter: 2006Q2

REPORT INFORMATION
  Report Type: 
  Country: None (occurrence: None)
  Receive Date: 20060508
  Receipt Date: 20060424
  Transmission Date: 20061013
  Serious: Yes (Death, Hospitalization)
  Sender: FDA-Public Use
  Company Number: 2006037838

PATIENT
  Age: 66 Year
  Sex: Male

DRUGS (9)
  1. PREDNISOLONE [Suspect]
     Indication: ILL-DEFINED DISORDER
  2. CYCLOPHOSPHAMIDE [Suspect]
     Indication: ILL-DEFINED DISORDER
  3. VINCRISTINE [Suspect]
     Indication: ILL-DEFINED DISORDER
  4. RITUXIMAB (RITUXIMAB) [Suspect]
     Indication: ILL-DEFINED DISORDER
  5. CISPLATIN [Suspect]
     Indication: ILL-DEFINED DISORDER
  6. ETOPOSIDE [Concomitant]
  7. BLEOMYCIN [Concomitant]
  8. METHOTREXATE [Concomitant]
  9. GEMCITABINE [Concomitant]

REACTIONS (3)
  - LIVER DISORDER [None]
  - PERIPHERAL T-CELL LYMPHOMA UNSPECIFIED [None]
  - THERAPY NON-RESPONDER [None]
